FAERS Safety Report 19051221 (Version 2)
Quarter: 2021Q2

REPORT INFORMATION
  Report Type: Report from Study
  Country: CL (occurrence: CL)
  Receive Date: 20210324
  Receipt Date: 20210406
  Transmission Date: 20210717
  Serious: Yes (Disabling, Other)
  Sender: FDA-Public Use
  Company Number: NVSC2021CL060692

PATIENT
  Age: 62 Year
  Sex: Male

DRUGS (2)
  1. DABRAFENIB [Suspect]
     Active Substance: DABRAFENIB
     Indication: MALIGNANT MELANOMA STAGE III
     Dosage: 150 MG, BID
     Route: 048
     Dates: start: 20200826, end: 20210113
  2. TRAMETINIB [Suspect]
     Active Substance: TRAMETINIB
     Indication: MALIGNANT MELANOMA STAGE III
     Dosage: 2 MG, BID
     Route: 048
     Dates: start: 20200826, end: 20210113

REACTIONS (8)
  - Visual acuity reduced [Recovering/Resolving]
  - Pyrexia [Unknown]
  - Visual impairment [Recovering/Resolving]
  - Blindness [Unknown]
  - Vision blurred [Unknown]
  - Vogt-Koyanagi-Harada disease [Recovering/Resolving]
  - Ocular hyperaemia [Recovered/Resolved]
  - Dyschromatopsia [Unknown]

NARRATIVE: CASE EVENT DATE: 20210113
